FAERS Safety Report 7275778-2 (Version None)
Quarter: 2011Q1

REPORT INFORMATION
  Report Type: 
  Country: None (occurrence: None)
  Receive Date: 20110204
  Receipt Date: 20110128
  Transmission Date: 20110831
  Serious: Yes (Other)
  Sender: FDA-Public Use
  Company Number: US-MERCK-1102USA00446

PATIENT
  Sex: Female

DRUGS (2)
  1. FOSAMAX [Suspect]
     Route: 065
     Dates: start: 20001001, end: 20090101
  2. FOSAMAX [Suspect]
     Route: 048
     Dates: start: 20100101, end: 20100101

REACTIONS (5)
  - FOOT FRACTURE [None]
  - ARTHROPATHY [None]
  - MASTICATION DISORDER [None]
  - BONE DENSITY DECREASED [None]
  - FRACTURE [None]
